FAERS Safety Report 17483366 (Version 2)
Quarter: 2020Q1

REPORT INFORMATION
  Report Type: Report from Study
  Country: HU (occurrence: HU)
  Receive Date: 20200302
  Receipt Date: 20200325
  Transmission Date: 20200409
  Serious: Yes (Death, Other)
  Sender: FDA-Public Use
  Company Number: HU-ASTRAZENECA-2020SE30606

PATIENT
  Sex: Male

DRUGS (1)
  1. SYNAGIS [Suspect]
     Active Substance: PALIVIZUMAB
     Indication: ANTIVIRAL PROPHYLAXIS
     Dosage: 50MG/0.5ML; SYNAGIS WAS GIVEN BASED ON BODY WEIGHT, MONTHLY
     Route: 030
     Dates: start: 20200110

REACTIONS (2)
  - Pulmonary vascular disorder [Unknown]
  - Shunt occlusion [Fatal]
